FAERS Safety Report 8785701 (Version 1)
Quarter: 2012Q4

REPORT INFORMATION
  Report Type: 
  Country: US (occurrence: US)
  Receive Date: 20120914
  Receipt Date: 20120914
  Transmission Date: 20130627
  Serious: Yes (Hospitalization, Other)
  Sender: FDA-Public Use
  Company Number: US-JNJFOC-20120905241

PATIENT
  Age: 73 Year
  Sex: Female
  Weight: 87.09 kg

DRUGS (4)
  1. ZYRTEC IR [Suspect]
     Indication: CHRONIC SINUSITIS
     Dosage: 10mg one daily as needed
     Route: 065
  2. ZYRTEC IR [Suspect]
     Indication: CHRONIC SINUSITIS
     Route: 065
     Dates: start: 2012
  3. ASPIRIN [Concomitant]
     Indication: PRODUCT USED FOR UNKNOWN INDICATION
     Route: 065
  4. VITAMIN B12 [Concomitant]
     Indication: PRODUCT USED FOR UNKNOWN INDICATION
     Route: 065

REACTIONS (11)
  - Carotid artery occlusion [Not Recovered/Not Resolved]
  - Cardiac disorder [Not Recovered/Not Resolved]
  - Arterial therapeutic procedure [Unknown]
  - Rhinorrhoea [Not Recovered/Not Resolved]
  - Retching [Not Recovered/Not Resolved]
  - Dysphonia [Not Recovered/Not Resolved]
  - Constipation [Not Recovered/Not Resolved]
  - Hypertension [Not Recovered/Not Resolved]
  - Insomnia [Not Recovered/Not Resolved]
  - Drug ineffective for unapproved indication [Unknown]
  - Wrong drug administered [Unknown]
